FAERS Safety Report 17952537 (Version 1)
Quarter: 2020Q2

REPORT INFORMATION
  Report Type: Spontaneous
  Country: AU (occurrence: AU)
  Receive Date: 20200626
  Receipt Date: 20200626
  Transmission Date: 20200714
  Serious: Yes (Other)
  Sender: FDA-Public Use
  Company Number: NVSC2020AU178975

PATIENT
  Age: 53 Year
  Sex: Female

DRUGS (1)
  1. TERIFLUNOMIDE. [Suspect]
     Active Substance: TERIFLUNOMIDE
     Indication: PRODUCT USED FOR UNKNOWN INDICATION
     Dosage: UNK
     Route: 065

REACTIONS (10)
  - Weight decreased [Unknown]
  - Suicide attempt [Unknown]
  - Peroneal nerve palsy [Unknown]
  - Fatigue [Unknown]
  - Alopecia [Unknown]
  - Anal incontinence [Unknown]
  - Nausea [Unknown]
  - Urinary incontinence [Unknown]
  - Vomiting [Unknown]
  - Diarrhoea [Unknown]
